FAERS Safety Report 10219407 (Version 2)
Quarter: 2014Q2

REPORT INFORMATION
  Report Type: Report from Study
  Country: US (occurrence: US)
  Receive Date: 20140605
  Receipt Date: 20140612
  Transmission Date: 20141212
  Serious: Yes (Hospitalization, Other)
  Sender: FDA-Public Use
  Company Number: US-GLAXOSMITHKLINE-A1066738A

PATIENT
  Age: 69 Year
  Sex: Male
  Weight: 102.6 kg

DRUGS (20)
  1. OFATUMUMAB [Suspect]
     Indication: CHRONIC LYMPHOCYTIC LEUKAEMIA
     Dosage: 1000MG MONTHLY
     Route: 042
     Dates: start: 20130827
  2. ALEMTUZUMAB [Suspect]
     Indication: CHRONIC LYMPHOCYTIC LEUKAEMIA
     Route: 058
     Dates: start: 20131216
  3. POSACONAZOLE [Concomitant]
  4. GUAIFENESIN [Concomitant]
  5. ACYCLOVIR [Concomitant]
  6. ASPIRIN [Concomitant]
  7. ATORVASTATIN [Concomitant]
  8. BACTRIM DS [Concomitant]
  9. FERROUS SULFATE [Concomitant]
  10. FOLATE [Concomitant]
  11. FUROSEMIDE [Concomitant]
  12. LANTUS [Concomitant]
  13. LATANOPROST [Concomitant]
  14. LISINOPRIL [Concomitant]
  15. METFORMIN [Concomitant]
  16. METOPROLOL [Concomitant]
  17. NOVOLOG [Concomitant]
  18. PAROXETINE [Concomitant]
  19. PRANDIN [Concomitant]
  20. VITAMIN E [Concomitant]

REACTIONS (2)
  - Chronic lymphocytic leukaemia transformation [Unknown]
  - Pneumonia [Recovered/Resolved]
